FAERS Safety Report 6544255-6 (Version None)
Quarter: 2010Q1

REPORT INFORMATION
  Report Type: 
  Country: None (occurrence: None)
  Receive Date: 20100119
  Receipt Date: 20100119
  Transmission Date: 20100710
  Serious: Yes (Hospitalization)
  Sender: FDA-Public Use
  Company Number: None

PATIENT
  Age: 40 Year
  Sex: Female

DRUGS (20)
  1. FLUDARABINE PHOSPHATE [Suspect]
     Indication: PANCREATIC CARCINOMA METASTATIC
     Dosage: 48 MG, 1 DAY, INTRAVENOUS
     Route: 042
     Dates: start: 20090918, end: 20090922
  2. MEROPENEM [Suspect]
     Indication: ANTIBIOTIC PROPHYLAXIS
     Dosage: 1 G, 3 DAY, INTRAVENOUS
     Route: 042
     Dates: start: 20090918, end: 20090922
  3. MEROPENEM [Suspect]
     Indication: INFECTION
     Dosage: 1 G, 3 DAY, INTRAVENOUS
     Route: 042
     Dates: start: 20090918, end: 20090922
  4. MEROPENEM [Suspect]
     Indication: NEUTROPENIC SEPSIS
     Dosage: 1 G, 3 DAY, INTRAVENOUS
     Route: 042
     Dates: start: 20090918, end: 20090922
  5. MEROPENEM [Suspect]
     Indication: ANTIBIOTIC PROPHYLAXIS
     Dosage: 1 G, 3 DAY, INTRAVENOUS
     Route: 042
     Dates: start: 20090923, end: 20090928
  6. MEROPENEM [Suspect]
     Indication: INFECTION
     Dosage: 1 G, 3 DAY, INTRAVENOUS
     Route: 042
     Dates: start: 20090923, end: 20090928
  7. MEROPENEM [Suspect]
     Indication: NEUTROPENIC SEPSIS
     Dosage: 1 G, 3 DAY, INTRAVENOUS
     Route: 042
     Dates: start: 20090923, end: 20090928
  8. MEROPENEM [Suspect]
     Indication: ANTIBIOTIC PROPHYLAXIS
     Dosage: 1 G, 3 DAY, INTRAVENOUS
     Route: 042
     Dates: start: 20091004, end: 20091012
  9. MEROPENEM [Suspect]
     Indication: INFECTION
     Dosage: 1 G, 3 DAY, INTRAVENOUS
     Route: 042
     Dates: start: 20091004, end: 20091012
  10. MEROPENEM [Suspect]
     Indication: NEUTROPENIC SEPSIS
     Dosage: 1 G, 3 DAY, INTRAVENOUS
     Route: 042
     Dates: start: 20091004, end: 20091012
  11. INVESTIGATIONAL DRUG [Suspect]
     Indication: PANCREATIC CARCINOMA METASTATIC
     Dosage: INTRAVENOUS
     Route: 042
     Dates: start: 20090923, end: 20090923
  12. TEICOPLANIN [Suspect]
     Indication: ANTIBIOTIC PROPHYLAXIS
     Dosage: 200 MG, 1 DAY
     Dates: start: 20090918, end: 20090919
  13. TEICOPLANIN [Suspect]
     Indication: INFECTION
     Dosage: 200 MG, 1 DAY
     Dates: start: 20090918, end: 20090919
  14. TEICOPLANIN [Suspect]
     Indication: NEUTROPENIC SEPSIS
     Dosage: 200 MG, 1 DAY
     Dates: start: 20090918, end: 20090919
  15. TEICOPLANIN [Suspect]
     Indication: ANTIBIOTIC PROPHYLAXIS
     Dosage: 200 MG, 1 DAY
     Dates: start: 20090923, end: 20090928
  16. TEICOPLANIN [Suspect]
     Indication: INFECTION
     Dosage: 200 MG, 1 DAY
     Dates: start: 20090923, end: 20090928
  17. TEICOPLANIN [Suspect]
     Indication: NEUTROPENIC SEPSIS
     Dosage: 200 MG, 1 DAY
     Dates: start: 20090923, end: 20090928
  18. CYCLOPHOSPHAMIDE [Suspect]
     Indication: PANCREATIC CARCINOMA METASTATIC
     Dosage: 4500 MG, INTRAVENOUS
     Route: 042
     Dates: start: 20090916, end: 20090916
  19. CYCLOPHOSPHAMIDE [Suspect]
     Indication: PANCREATIC CARCINOMA METASTATIC
     Dosage: 4500 MG, INTRAVENOUS
     Route: 042
     Dates: start: 20090917, end: 20090917
  20. PROLEUKIN [Suspect]
     Indication: PANCREATIC CARCINOMA METASTATIC
     Dosage: INTRAVENOUS
     Route: 042
     Dates: start: 20090923, end: 20090926

REACTIONS (5)
  - BLOOD BILIRUBIN INCREASED [None]
  - CLOSTRIDIUM DIFFICILE COLITIS [None]
  - NEUTROPENIC SEPSIS [None]
  - POST PROCEDURAL COMPLICATION [None]
  - THROMBOCYTOPENIA [None]
